FAERS Safety Report 7565244-9 (Version None)
Quarter: 2011Q2

REPORT INFORMATION
  Report Type: 
  Country: None (occurrence: None)
  Receive Date: 20110622
  Receipt Date: 20110614
  Transmission Date: 20111010
  Serious: Yes (Hospitalization, Other)
  Sender: FDA-Public Use
  Company Number: US-RB-025089-11

PATIENT
  Age: 66 Year
  Sex: Female

DRUGS (1)
  1. SUBOXONE [Suspect]
     Indication: PRODUCT USED FOR UNKNOWN INDICATION
     Dosage: DOSING INFORMATION UNKNOWN
     Route: 065

REACTIONS (6)
  - BACK DISORDER [None]
  - ARTHRALGIA [None]
  - ARTHROPATHY [None]
  - PAIN [None]
  - MALIGNANT MELANOMA [None]
  - OFF LABEL USE [None]
